FAERS Safety Report 25892509 (Version 2)
Quarter: 2025Q4

REPORT INFORMATION
  Report Type: Report from Study
  Country: US (occurrence: US)
  Receive Date: 20251007
  Receipt Date: 20251224
  Transmission Date: 20260118
  Serious: Yes (Other)
  Sender: ELI LILLY AND COMPANY
  Company Number: US-ELI_LILLY_AND_COMPANY-US202508018263

PATIENT
  Age: 77 Year
  Sex: Female

DRUGS (4)
  1. KISUNLA [Suspect]
     Active Substance: DONANEMAB-AZBT
     Indication: Dementia Alzheimer^s type
     Dosage: UNK UNK, UNKNOWN
     Route: 065
  2. KISUNLA [Suspect]
     Active Substance: DONANEMAB-AZBT
     Dosage: UNK UNK, UNKNOWN (2ND INFUSION)
     Route: 065
     Dates: start: 20250714
  3. KISUNLA [Suspect]
     Active Substance: DONANEMAB-AZBT
     Dosage: UNK UNK, UNKNOWN (3RD INFUSION)
     Route: 065
     Dates: start: 20250811
  4. KISUNLA [Suspect]
     Active Substance: DONANEMAB-AZBT
     Dosage: 1050 MG (4TH INFUSION)
     Route: 042
     Dates: start: 20251209

REACTIONS (10)
  - Brain oedema [Unknown]
  - Delirium [Unknown]
  - Dementia [Unknown]
  - Gait disturbance [Unknown]
  - Incontinence [Unknown]
  - Cognitive disorder [Unknown]
  - Speech disorder [Unknown]
  - Confusional state [Unknown]
  - Disorientation [Unknown]
  - Drug ineffective [Unknown]
